FAERS Safety Report 18250635 (Version 2)
Quarter: 2020Q4

REPORT INFORMATION
  Report Type: Spontaneous
  Country: KR (occurrence: KR)
  Receive Date: 20200909
  Receipt Date: 20201015
  Transmission Date: 20210113
  Serious: Yes (Other)
  Sender: FDA-Public Use
  Company Number: KR-JAZZ-2020-KR-011651

PATIENT
  Age: 10 Year
  Sex: Male

DRUGS (3)
  1. URSODEOXYCHOLIC ACID [Concomitant]
     Active Substance: URSODIOL
     Indication: PROPHYLAXIS
  2. HEPARIN [Concomitant]
     Active Substance: HEPARIN SODIUM
     Indication: PROPHYLAXIS
  3. DEFITELIO [Suspect]
     Active Substance: DEFIBROTIDE SODIUM
     Indication: PROPHYLAXIS
     Dosage: 11.078 MILLIGRAM/KILOGRAM/DAY
     Route: 042

REACTIONS (2)
  - Venoocclusive disease [Recovering/Resolving]
  - Off label use [Unknown]
